FAERS Safety Report 13489096 (Version 1)
Quarter: 2017Q2

REPORT INFORMATION
  Report Type: Spontaneous
  Country: US (occurrence: US)
  Receive Date: 20170426
  Receipt Date: 20170426
  Transmission Date: 20170830
  Serious: No
  Sender: FDA-Public Use
  Company Number: US-MAYNE PHARMA-2016MYN001342

PATIENT
  Sex: Female
  Weight: 59.02 kg

DRUGS (1)
  1. CARBIDOPA/LEVODOPA [Suspect]
     Active Substance: CARBIDOPA\LEVODOPA
     Indication: PARKINSON^S DISEASE
     Route: 065
     Dates: start: 2009

REACTIONS (8)
  - Fatigue [Unknown]
  - Blood zinc decreased [Unknown]
  - Blood cholesterol decreased [Unknown]
  - Dehydration [Unknown]
  - Protein total decreased [Unknown]
  - Weight decreased [Unknown]
  - Somnolence [Unknown]
  - Blood calcium decreased [Unknown]

NARRATIVE: CASE EVENT DATE: 2015
